FAERS Safety Report 5453951-3 (Version None)
Quarter: 2007Q3

REPORT INFORMATION
  Report Type: 
  Country: None (occurrence: None)
  Receive Date: 20070917
  Receipt Date: 20070330
  Transmission Date: 20080115
  Serious: Yes (Hospitalization)
  Sender: FDA-Public Use
  Company Number: US-ASTRAZENECA-2006UW02372

PATIENT
  Age: 12011 Day
  Sex: Female
  Weight: 82.3 kg

DRUGS (6)
  1. SEROQUEL [Suspect]
     Indication: HALLUCINATION, AUDITORY
     Dosage: 100MG, 300MG
     Route: 048
  2. SEROQUEL [Suspect]
     Indication: DEPRESSION
     Dosage: 100MG, 300MG
     Route: 048
  3. ABILIFY [Concomitant]
  4. GEODON [Concomitant]
  5. RISPERDAL [Concomitant]
     Dates: start: 20050306
  6. ZYPREXA [Concomitant]
     Dates: start: 20050604

REACTIONS (1)
  - HYPERGLYCAEMIA [None]
